FAERS Safety Report 16920919 (Version 2)
Quarter: 2019Q4

REPORT INFORMATION
  Report Type: Spontaneous
  Country: US (occurrence: US)
  Receive Date: 20191015
  Receipt Date: 20191017
  Transmission Date: 20200122
  Serious: Yes (Death)
  Sender: FDA-Public Use
  Company Number: US-PFIZER INC-2019437262

PATIENT
  Age: 28 Year
  Sex: Male

DRUGS (1)
  1. SODIUM BICARBONATE. [Suspect]
     Active Substance: SODIUM BICARBONATE
     Indication: TOXICITY TO VARIOUS AGENTS
     Dosage: UNK (DRIP)
     Route: 041

REACTIONS (1)
  - Drug ineffective [Fatal]
